FAERS Safety Report 8271469-X (Version None)
Quarter: 2012Q2

REPORT INFORMATION
  Report Type: 
  Country: None (occurrence: None)
  Receive Date: 20120410
  Receipt Date: 20120406
  Transmission Date: 20120825
  Serious: Yes (Death)
  Sender: FDA-Public Use
  Company Number: ZA-PFIZER INC-2012086145

PATIENT
  Age: 60 Year
  Sex: Male

DRUGS (5)
  1. VARENICLINE TARTRATE [Suspect]
     Indication: SMOKING CESSATION THERAPY
     Dosage: 1 MG, 1X/DAY
     Route: 048
  2. LANOXIN [Concomitant]
     Dosage: 0.25 MG, 1X/DAY
  3. FUROSEMIDE [Concomitant]
     Dosage: 40 MG, 1X/DAY
  4. CARVEDILOL [Concomitant]
     Dosage: 6.25 MG, 1X/DAY
  5. ZETOMAX [Concomitant]
     Dosage: 10 MG, 1X/DAY

REACTIONS (1)
  - SUDDEN DEATH [None]
